FAERS Safety Report 6723419-2 (Version None)
Quarter: 2010Q2

REPORT INFORMATION
  Report Type: 
  Country: None (occurrence: None)
  Receive Date: 20100511
  Receipt Date: 20100504
  Transmission Date: 20101027
  Serious: Yes (Hospitalization)
  Sender: FDA-Public Use
  Company Number: 1000013557

PATIENT
  Age: 33 Year
  Sex: Male

DRUGS (5)
  1. CARBAMAZEPINE [Suspect]
     Indication: STATUS EPILEPTICUS
     Dosage: 400 MG (400 MG, 1 IN 1 D)
  2. VALPROIC ACID [Concomitant]
  3. PHENYTOIN [Concomitant]
  4. CLONAZEPAM [Concomitant]
  5. ZONISAMIDE [Concomitant]

REACTIONS (8)
  - APLASIA [None]
  - B-LYMPHOCYTE COUNT DECREASED [None]
  - HEPATIC FUNCTION ABNORMAL [None]
  - HYPOGAMMAGLOBULINAEMIA [None]
  - INTERSTITIAL LUNG DISEASE [None]
  - LYMPHOCYTE COUNT DECREASED [None]
  - LYMPHOCYTE STIMULATION TEST POSITIVE [None]
  - RASH [None]
